FAERS Safety Report 22918276 (Version 2)
Quarter: 2023Q4

REPORT INFORMATION
  Report Type: Other
  Country: US (occurrence: US)
  Receive Date: 20230907
  Receipt Date: 20231116
  Transmission Date: 20240110
  Serious: No
  Sender: FDA-Public Use
  Company Number: US-TRAVERE-2023TVT00397

PATIENT
  Age: 48 Year
  Sex: Male

DRUGS (2)
  1. FILSPARI [Suspect]
     Active Substance: SPARSENTAN
     Indication: Product used for unknown indication
     Dosage: 200 MG
     Route: 048
  2. FILSPARI [Suspect]
     Active Substance: SPARSENTAN
     Dosage: 400 MG
     Route: 048
     Dates: start: 20230811

REACTIONS (2)
  - Fatigue [None]
  - Oedema peripheral [Recovering/Resolving]
